FAERS Safety Report 8557058-8 (Version None)
Quarter: 2012Q3

REPORT INFORMATION
  Report Type: 
  Country: None (occurrence: None)
  Receive Date: 20120801
  Receipt Date: 20120723
  Transmission Date: 20120928
  Serious: Yes (Other)
  Sender: FDA-Public Use
  Company Number: US-JNJFOC-20120712029

PATIENT
  Age: 35 Year
  Sex: Female

DRUGS (2)
  1. SUDAFED 12 HOUR [Suspect]
     Indication: NASOPHARYNGITIS
     Route: 048
  2. SUDAFED 12 HOUR [Suspect]
     Route: 048

REACTIONS (1)
  - HALLUCINATION [None]
